FAERS Safety Report 13363947 (Version 1)
Quarter: 2017Q1

REPORT INFORMATION
  Report Type: Spontaneous
  Country: US (occurrence: US)
  Receive Date: 20170323
  Receipt Date: 20170323
  Transmission Date: 20170429
  Serious: Yes (Other)
  Sender: FDA-Public Use
  Company Number: US-ASTRAZENECA-2017SE28666

PATIENT
  Age: 775 Month
  Sex: Female
  Weight: 54.4 kg

DRUGS (5)
  1. TAMOXIFEN [Suspect]
     Active Substance: TAMOXIFEN
     Indication: PROPHYLAXIS
     Route: 048
     Dates: start: 201602, end: 201604
  2. TAMOXIFEN [Suspect]
     Active Substance: TAMOXIFEN
     Indication: PROPHYLAXIS
     Route: 048
     Dates: start: 201602, end: 201604
  3. SEROQUEL XR [Suspect]
     Active Substance: QUETIAPINE FUMARATE
     Indication: OBSESSIVE-COMPULSIVE DISORDER
     Route: 048
     Dates: start: 2008
  4. ANASTROZOLE. [Suspect]
     Active Substance: ANASTROZOLE
     Indication: DRUG INTOLERANCE
     Route: 048
     Dates: start: 201606, end: 201701
  5. ANAFRANIL [Concomitant]
     Active Substance: CLOMIPRAMINE HYDROCHLORIDE
     Indication: OBSESSIVE-COMPULSIVE DISORDER
     Route: 048
     Dates: start: 2008

REACTIONS (8)
  - Breast cancer stage III [Unknown]
  - Breast calcifications [Unknown]
  - Obsessive-compulsive disorder [Unknown]
  - Hot flush [Unknown]
  - Drug intolerance [Unknown]
  - Off label use [Unknown]
  - Diarrhoea [Unknown]
  - Product use issue [Unknown]

NARRATIVE: CASE EVENT DATE: 201502
